FAERS Safety Report 10527765 (Version 1)
Quarter: 2014Q4

REPORT INFORMATION
  Report Type: Spontaneous
  Country: US (occurrence: None)
  Receive Date: 20141016
  Receipt Date: 20141016
  Transmission Date: 20150528
  Serious: Yes (Other)
  Sender: FDA-Public Use
  Company Number: None

PATIENT
  Age: 75 Year
  Sex: Female
  Weight: 72.58 kg

DRUGS (1)
  1. LATISSE [Suspect]
     Active Substance: BIMATOPROST
     Indication: MADAROSIS
     Dosage: EVENING APPLICATION, AT BEDTIME
     Route: 061
     Dates: start: 20140929, end: 20141006

REACTIONS (3)
  - Paraesthesia [None]
  - Insomnia [None]
  - Lip pain [None]

NARRATIVE: CASE EVENT DATE: 20140929
